FAERS Safety Report 8428564-1 (Version None)
Quarter: 2012Q2

REPORT INFORMATION
  Report Type: 
  Country: None (occurrence: None)
  Receive Date: 20120606
  Receipt Date: 20120606
  Transmission Date: 20120825
  Serious: Yes (Other)
  Sender: FDA-Public Use
  Company Number: None

PATIENT
  Age: 67 Year
  Sex: Female
  Weight: 88.4514 kg

DRUGS (1)
  1. GEMFIBROZIL [Suspect]
     Indication: BLOOD TRIGLYCERIDES INCREASED
     Dosage: 300 MG BID PO
     Route: 048
     Dates: start: 20120502, end: 20120529

REACTIONS (8)
  - RASH [None]
  - INTERNATIONAL NORMALISED RATIO INCREASED [None]
  - MOVEMENT DISORDER [None]
  - MYALGIA [None]
  - DRUG INTERACTION [None]
  - ARTHRALGIA [None]
  - MUSCULAR WEAKNESS [None]
  - VISION BLURRED [None]
